FAERS Safety Report 13963382 (Version 1)
Quarter: 2017Q3

REPORT INFORMATION
  Report Type: Spontaneous
  Country: US (occurrence: None)
  Receive Date: 20170913
  Receipt Date: 20170913
  Transmission Date: 20171128
  Serious: Yes (Hospitalization)
  Sender: FDA-Public Use
  Company Number: None

PATIENT
  Age: 55 Year
  Sex: Male
  Weight: 78.7 kg

DRUGS (1)
  1. MEMANTINE HYDROCHLORIDE. [Suspect]
     Active Substance: MEMANTINE HYDROCHLORIDE
     Dates: end: 20170907

REACTIONS (17)
  - Blood urine present [None]
  - Constipation [None]
  - Urine leukocyte esterase positive [None]
  - Drug administration error [None]
  - Gliosis [None]
  - Mass [None]
  - Urinary incontinence [None]
  - Vertebral foraminal stenosis [None]
  - Protein urine present [None]
  - Intervertebral disc degeneration [None]
  - Pain [None]
  - Neck pain [None]
  - Chest pain [None]
  - Arthralgia [None]
  - Bone pain [None]
  - Urinary tract infection [None]
  - Urinary casts present [None]

NARRATIVE: CASE EVENT DATE: 20170902
